FAERS Safety Report 10137089 (Version 2)
Quarter: 2014Q2

REPORT INFORMATION
  Report Type: Report from Study
  Country: US (occurrence: US)
  Receive Date: 20140429
  Receipt Date: 20140429
  Transmission Date: 20141212
  Serious: No
  Sender: FDA-Public Use
  Company Number: US-ABBVIE-14P-163-1205759-00

PATIENT
  Age: 55 Year
  Sex: Male
  Weight: 80.81 kg

DRUGS (6)
  1. ANDROGEL [Suspect]
     Indication: PRODUCT USED FOR UNKNOWN INDICATION
     Dosage: 1 PUMP DAILY
     Route: 061
     Dates: start: 20140117, end: 20140128
  2. ANDROGEL [Suspect]
     Dosage: 2 PUMPS DAILY
     Route: 061
     Dates: start: 20140129, end: 20140219
  3. ANDROGEL [Suspect]
     Dosage: 3 PUMPS DAILY
     Route: 061
     Dates: start: 20140220
  4. DHEA [Concomitant]
     Indication: PRODUCT USED FOR UNKNOWN INDICATION
  5. 7-KETO [Concomitant]
     Indication: PRODUCT USED FOR UNKNOWN INDICATION
  6. FISH OIL [Concomitant]
     Indication: PRODUCT USED FOR UNKNOWN INDICATION

REACTIONS (2)
  - Medication error [Unknown]
  - Blood testosterone decreased [Not Recovered/Not Resolved]
